FAERS Safety Report 16289594 (Version 2)
Quarter: 2019Q3

REPORT INFORMATION
  Report Type: Report from Study
  Country: US (occurrence: US)
  Receive Date: 20190509
  Receipt Date: 20190715
  Transmission Date: 20191004
  Serious: Yes (Other)
  Sender: FDA-Public Use
  Company Number: US-BIOGEN-2013BI017418

PATIENT
  Age: 29 Year
  Sex: Female

DRUGS (5)
  1. AVONEX [Suspect]
     Active Substance: INTERFERON BETA-1A
     Route: 030
     Dates: start: 20130204
  2. AVONEX [Suspect]
     Active Substance: INTERFERON BETA-1A
     Route: 065
     Dates: start: 20150904, end: 20180710
  3. AVONEX [Suspect]
     Active Substance: INTERFERON BETA-1A
     Route: 030
     Dates: start: 20190430
  4. AVONEX [Suspect]
     Active Substance: INTERFERON BETA-1A
     Indication: MULTIPLE SCLEROSIS
     Route: 065
     Dates: start: 2009
  5. AVONEX [Suspect]
     Active Substance: INTERFERON BETA-1A
     Route: 030
     Dates: start: 20120101, end: 20121101

REACTIONS (5)
  - Insomnia [Not Recovered/Not Resolved]
  - Injection site infection [Recovered/Resolved]
  - Liver injury [Recovered/Resolved]
  - Prescribed overdose [Recovered/Resolved]
  - Headache [Not Recovered/Not Resolved]

NARRATIVE: CASE EVENT DATE: 2009
